FAERS Safety Report 13538326 (Version 1)
Quarter: 2017Q2

REPORT INFORMATION
  Report Type: Spontaneous
  Country: TW (occurrence: TW)
  Receive Date: 20170512
  Receipt Date: 20170512
  Transmission Date: 20170830
  Serious: Yes (Death, Hospitalization)
  Sender: FDA-Public Use
  Company Number: TW-AMGEN-TWNSP2017068001

PATIENT
  Age: 79 Year
  Sex: Female

DRUGS (4)
  1. ENBREL [Suspect]
     Active Substance: ETANERCEPT
     Indication: RHEUMATOID ARTHRITIS
     Dosage: 25 MG, AS NEEDED
     Route: 058
     Dates: start: 20100518
  2. CELEBREX [Concomitant]
     Active Substance: CELECOXIB
     Dosage: 1 TABLET, QD
  3. MTX [Concomitant]
     Active Substance: METHOTREXATE SODIUM
     Dosage: 5 TABLETS, QW
  4. PREDNISOLONE. [Concomitant]
     Active Substance: PREDNISOLONE
     Dosage: 1 TABLET, QD

REACTIONS (3)
  - Urinary tract infection [Unknown]
  - Product use issue [Unknown]
  - Sepsis [Fatal]

NARRATIVE: CASE EVENT DATE: 2017
